FAERS Safety Report 16204634 (Version 2)
Quarter: 2019Q2

REPORT INFORMATION
  Report Type: Report from Study
  Country: US (occurrence: US)
  Receive Date: 20190416
  Receipt Date: 20190422
  Transmission Date: 20190711
  Serious: Yes (Hospitalization)
  Sender: FDA-Public Use
  Company Number: US-BRISTOL-MYERS SQUIBB COMPANY-BMS-2019-037140

PATIENT
  Age: 36 Year
  Sex: Female
  Weight: 52.7 kg

DRUGS (3)
  1. ROMIDEPSIN. [Suspect]
     Active Substance: ROMIDEPSIN
     Indication: BREAST CANCER METASTATIC
     Dosage: 10 MILLIGRAM/SQ. METER, Q3WK
     Route: 042
     Dates: start: 20181026
  2. NIVOLUMAB [Suspect]
     Active Substance: NIVOLUMAB
     Indication: BREAST CANCER METASTATIC
     Dosage: 360 MILLIGRAM, Q3WK
     Route: 065
  3. CISPLATIN. [Suspect]
     Active Substance: CISPLATIN
     Indication: BREAST CANCER METASTATIC
     Dosage: 60 MILLIGRAM/SQ. METER, Q3WK
     Route: 042
     Dates: start: 20181024

REACTIONS (3)
  - Atelectasis [Unknown]
  - Pleural effusion [Recovered/Resolved with Sequelae]
  - Dyspnoea [Unknown]

NARRATIVE: CASE EVENT DATE: 20190407
